FAERS Safety Report 9776162 (Version 3)
Quarter: 2014Q1

REPORT INFORMATION
  Report Type: Spontaneous
  Country: US (occurrence: US)
  Receive Date: 20131220
  Receipt Date: 20140324
  Transmission Date: 20141002
  Serious: Yes (Hospitalization)
  Sender: FDA-Public Use
  Company Number: US-UCBSA-105898

PATIENT
  Age: 29 Year
  Sex: Female

DRUGS (6)
  1. VIMPAT [Suspect]
     Dosage: 150 MG
  2. VIMPAT [Suspect]
     Dosage: 80 TABLETS
  3. ONFI [Suspect]
     Dosage: 10 MG
  4. ONFI [Suspect]
     Dosage: 40 TABLETS
  5. KEPPRA [Concomitant]
     Route: 048
  6. TOPRAMAX [Concomitant]
     Route: 048

REACTIONS (2)
  - Overdose [Recovering/Resolving]
  - Nervous system disorder [Recovering/Resolving]
